FAERS Safety Report 12263517 (Version 1)
Quarter: 2016Q2

REPORT INFORMATION
  Report Type: Spontaneous
  Country: US (occurrence: US)
  Receive Date: 20160413
  Receipt Date: 20160413
  Transmission Date: 20160815
  Serious: No
  Sender: FDA-Public Use
  Company Number: US-JNJFOC-20160324305

PATIENT
  Age: 77 Year
  Sex: Male
  Weight: 77.11 kg

DRUGS (1)
  1. TYLENOL EXTRA STRENGTH [Suspect]
     Active Substance: ACETAMINOPHEN
     Indication: PAIN
     Dosage: TAKING FOR YEARS; 1 IN THE MORNING,  2ND ONE AFTER 6 HOURS AND  3RD ONE 6 HOURS AFTER THAT.
     Route: 048

REACTIONS (2)
  - Off label use [Unknown]
  - Drug prescribing error [Unknown]
